FAERS Safety Report 4532234-X (Version None)
Quarter: 2004Q4

REPORT INFORMATION
  Report Type: 
  Country: None (occurrence: None)
  Receive Date: 20041217
  Receipt Date: 20041206
  Transmission Date: 20050328
  Serious: Yes (Other)
  Sender: FDA-Public Use
  Company Number: 2004-0007823

PATIENT
  Age: 29 Year
  Sex: Female

DRUGS (5)
  1. VIREAD [Suspect]
     Indication: HIV INFECTION
     Dosage: 300 MG, 1 IN 1 D, ORAL
     Route: 048
     Dates: start: 20040101, end: 20040506
  2. COMBIVIR [Suspect]
     Indication: HIV INFECTION
     Dosage: 250 MG, 1 IN 1D
     Dates: start: 20040506
  3. NELFINAVIR (NELFINAVIR) [Suspect]
     Indication: HIV INFECTION
     Dosage: 2.5 GM, 1 IN 1 D
     Dates: start: 20040506
  4. KALETRA [Suspect]
     Indication: HIV INFECTION
     Dosage: 6 MG, 1 IN 1 D
     Dates: start: 20040101, end: 20040506
  5. DIDANOSINE [Suspect]
     Indication: HIV INFECTION
     Dosage: 250 MG, 1 IN 1 D
     Dates: start: 20040101, end: 20040506

REACTIONS (3)
  - DRUG EXPOSURE DURING PREGNANCY [None]
  - INTRA-UTERINE DEATH [None]
  - PREGNANCY [None]
